FAERS Safety Report 8223020-8 (Version None)
Quarter: 2012Q1

REPORT INFORMATION
  Report Type: 
  Country: None (occurrence: None)
  Receive Date: 20120320
  Receipt Date: 20120313
  Transmission Date: 20120608
  Serious: Yes (Hospitalization)
  Sender: FDA-Public Use
  Company Number: US-ASTRAZENECA-2012SE17091

PATIENT
  Age: 39 Year
  Sex: Female
  Weight: 136.1 kg

DRUGS (14)
  1. FIORINAL [Concomitant]
     Indication: HEADACHE
     Dosage: AS REQUIRED
  2. PRASTERONE [Concomitant]
  3. ATENOLOL [Concomitant]
  4. DEPO-PROVERA [Concomitant]
     Indication: CONTRACEPTION
     Dosage: MONTH
  5. SEROQUEL XR [Suspect]
     Route: 048
     Dates: start: 20111101
  6. VITAMIN D [Concomitant]
     Dosage: 10000 UNIT
  7. LORTAB [Concomitant]
  8. TYLENOL [Concomitant]
  9. XANAX [Concomitant]
  10. THORAZINE [Concomitant]
  11. CELEXA [Concomitant]
     Indication: ANTIDEPRESSANT THERAPY
  12. LAMISIL [Concomitant]
  13. RISPERDAL [Concomitant]
  14. SEROQUEL XR [Suspect]
     Indication: INSOMNIA
     Route: 048
     Dates: start: 20110101, end: 20111101

REACTIONS (3)
  - MENTAL DISORDER [None]
  - OFF LABEL USE [None]
  - MAJOR DEPRESSION [None]
